FAERS Safety Report 24174759 (Version 1)
Quarter: 2024Q3

REPORT INFORMATION
  Report Type: Spontaneous
  Country: JP (occurrence: JP)
  Receive Date: 20240805
  Receipt Date: 20240805
  Transmission Date: 20241017
  Serious: Yes (Hospitalization)
  Sender: BEXIMCO PHARMACEUTICALS
  Company Number: JP-BEXIMCO-2024BEX00038

PATIENT
  Age: 45 Year
  Sex: Female
  Weight: 90 kg

DRUGS (2)
  1. METFORMIN HYDROCHLORIDE [Suspect]
     Active Substance: METFORMIN HYDROCHLORIDE
     Dosage: 2 G, 1X/DAY
     Route: 048
  2. METFORMIN HYDROCHLORIDE [Suspect]
     Active Substance: METFORMIN HYDROCHLORIDE
     Dosage: INGESTED  APPROXIMATELY 71 G
     Route: 048

REACTIONS (5)
  - Vasoplegia syndrome [Unknown]
  - Toxicity to various agents [Unknown]
  - Hypoxic-ischaemic encephalopathy [Unknown]
  - Lactic acidosis [Unknown]
  - Overdose [Unknown]
